FAERS Safety Report 4386303-8 (Version None)
Quarter: 2004Q2

REPORT INFORMATION
  Report Type: 
  Country: None (occurrence: None)
  Receive Date: 20040629
  Receipt Date: 20040107
  Transmission Date: 20050107
  Serious: Yes (Other)
  Sender: FDA-Public Use
  Company Number: CH-BRISTOL-MYERS SQUIBB COMPANY-12506382

PATIENT
  Age: 60 Year
  Sex: Female

DRUGS (3)
  1. GLUCOPHAGE [Suspect]
     Route: 048
     Dates: start: 20031125, end: 20031218
  2. INSULATARD NPH HUMAN [Suspect]
     Route: 058
     Dates: start: 20030101
  3. CHONDROSULF [Suspect]
     Route: 048
     Dates: start: 20010101

REACTIONS (1)
  - APHONIA [None]
